FAERS Safety Report 8054466-9 (Version None)
Quarter: 2012Q1

REPORT INFORMATION
  Report Type: 
  Country: None (occurrence: None)
  Receive Date: 20120118
  Receipt Date: 20120111
  Transmission Date: 20120608
  Serious: Yes (Other)
  Sender: FDA-Public Use
  Company Number: US-ROCHE-790246

PATIENT
  Sex: Female
  Weight: 61.29 kg

DRUGS (1)
  1. ACCUTANE [Suspect]
     Indication: ACNE CYSTIC
     Route: 065
     Dates: start: 20000901, end: 20010201

REACTIONS (6)
  - EMOTIONAL DISTRESS [None]
  - IRRITABLE BOWEL SYNDROME [None]
  - ECZEMA [None]
  - COLITIS ULCERATIVE [None]
  - DEPRESSION [None]
  - PERIRECTAL ABSCESS [None]
